FAERS Safety Report 5681595-7 (Version None)
Quarter: 2008Q1

REPORT INFORMATION
  Report Type: 
  Country: None (occurrence: None)
  Receive Date: 20080326
  Receipt Date: 20070223
  Transmission Date: 20080703
  Serious: No
  Sender: FDA-Public Use
  Company Number: US-BAYER-US-2007-006508

PATIENT
  Age: 26 Year
  Sex: Female
  Weight: 91 kg

DRUGS (3)
  1. MIRENA [Suspect]
     Indication: CONTRACEPTION
     Route: 015
     Dates: start: 20030101, end: 20070115
  2. LEXAPRO [Concomitant]
     Indication: DEPRESSION
     Dosage: UNIT DOSE: 10 MG
     Route: 048
     Dates: start: 20070219
  3. LORAZEPAM [Concomitant]
     Indication: ANXIETY
     Dosage: UNIT DOSE: 1 MG
     Dates: start: 20070220

REACTIONS (4)
  - ANXIETY [None]
  - DEPRESSION [None]
  - MENSTRUATION DELAYED [None]
  - TREMOR [None]
